FAERS Safety Report 12978947 (Version 1)
Quarter: 2016Q4

REPORT INFORMATION
  Report Type: Spontaneous
  Country: US (occurrence: US)
  Receive Date: 20161125
  Receipt Date: 20161125
  Transmission Date: 20170207
  Serious: No
  Sender: FDA-Public Use
  Company Number: None

PATIENT
  Age: 49 Year
  Sex: Male
  Weight: 115.77 kg

DRUGS (2)
  1. HYOSCYAMINE SULFATE 0.125MG VIRTUS PHARMACEUTICALS [Suspect]
     Active Substance: HYOSCYAMINE SULFATE
     Indication: ASTHENIA
     Dosage: 0.125 MG 15 PILLS 3X DAILY MOUTH
     Route: 048
     Dates: start: 20160316, end: 20160321
  2. HYOSCYAMINE SULFATE 0.125MG VIRTUS PHARMACEUTICALS [Suspect]
     Active Substance: HYOSCYAMINE SULFATE
     Indication: FATIGUE
     Dosage: 0.125 MG 15 PILLS 3X DAILY MOUTH
     Route: 048
     Dates: start: 20160316, end: 20160321

REACTIONS (4)
  - Skin exfoliation [None]
  - Delusion [None]
  - Constipation [None]
  - Asthenia [None]

NARRATIVE: CASE EVENT DATE: 20160410
